FAERS Safety Report 10011970 (Version 1)
Quarter: 2014Q1

REPORT INFORMATION
  Report Type: Spontaneous
  Country: US (occurrence: None)
  Receive Date: 20140313
  Receipt Date: 20140313
  Transmission Date: 20141002
  Serious: Yes (Hospitalization)
  Sender: FDA-Public Use
  Company Number: None

PATIENT
  Age: 62 Year
  Sex: Female
  Weight: 60.33 kg

DRUGS (1)
  1. BAXTER HEALTH CARE L2B9710 DIANEAL PD 2 1.5% 6 LITER [Suspect]
     Indication: RENAL FAILURE CHRONIC
     Dosage: 2.3L X5, 2.0L X 1 IP ?EVERY NIGHT ?

REACTIONS (2)
  - Dialysis [None]
  - Nausea [None]
